FAERS Safety Report 4610962-5 (Version None)
Quarter: 2005Q1

REPORT INFORMATION
  Report Type: 
  Country: None (occurrence: None)
  Receive Date: 20050315
  Receipt Date: 20050315
  Transmission Date: 20050727
  Serious: Yes (Hospitalization)
  Sender: FDA-Public Use
  Company Number: None

PATIENT
  Age: 63 Year
  Sex: Male
  Weight: 101.1521 kg

DRUGS (8)
  1. CRESTOR [Suspect]
     Indication: BLOOD CHOLESTEROL INCREASED
     Dosage: 10MG ONCE DAILY ORALLY
     Route: 048
     Dates: start: 20050120, end: 20050303
  2. ATENOLOL [Concomitant]
  3. GLYBURIDE [Concomitant]
  4. NAPROXEN [Concomitant]
  5. TEMAZEPAM [Concomitant]
  6. POTASSIUM CHLORIDE [Concomitant]
  7. CALCIUM GLUCONATE [Concomitant]
  8. OMEGA3 SUPPLEMENTS [Concomitant]

REACTIONS (7)
  - ASTHENIA [None]
  - CARDIAC DISORDER [None]
  - CHEST PAIN [None]
  - DIFFICULTY IN WALKING [None]
  - DYSPNOEA [None]
  - HEART RATE DECREASED [None]
  - MYALGIA [None]
